FAERS Safety Report 24603215 (Version 1)
Quarter: 2024Q4

REPORT INFORMATION
  Report Type: Spontaneous
  Country: CA (occurrence: None)
  Receive Date: 20241108
  Receipt Date: 20241108
  Transmission Date: 20250115
  Serious: Yes (Life-Threatening, Hospitalization, Other)
  Sender: Public
  Company Number: None

PATIENT
  Age: 38 Year
  Sex: Female
  Weight: 101.25 kg

DRUGS (3)
  1. REXULTI [Suspect]
     Active Substance: BREXPIPRAZOLE
     Indication: Depression
     Dates: start: 20241010, end: 20241105
  2. EFFEXOR [Concomitant]
     Active Substance: VENLAFAXINE HYDROCHLORIDE
  3. ATIVAN [Concomitant]

REACTIONS (15)
  - Stress [None]
  - Hot flush [None]
  - Dizziness [None]
  - Hyperhidrosis [None]
  - Malaise [None]
  - Heart rate increased [None]
  - Tremor [None]
  - Muscle spasms [None]
  - Hypoaesthesia [None]
  - Blood glucose abnormal [None]
  - Drug ineffective [None]
  - Dysstasia [None]
  - Gait disturbance [None]
  - Seizure [None]
  - Fatigue [None]

NARRATIVE: CASE EVENT DATE: 20241105
